FAERS Safety Report 17560934 (Version 1)
Quarter: 2020Q1

REPORT INFORMATION
  Report Type: Spontaneous
  Country: US (occurrence: US)
  Receive Date: 20200319
  Receipt Date: 20200319
  Transmission Date: 20200409
  Serious: No
  Sender: FDA-Public Use
  Company Number: US-009507513-2003USA004802

PATIENT
  Sex: Female

DRUGS (2)
  1. FOLLISTIM [Concomitant]
     Active Substance: FOLLITROPIN
  2. GANIRELIX ACETATE INJECTION [Suspect]
     Active Substance: GANIRELIX ACETATE
     Indication: PREVENTION OF PREMATURE OVULATION
     Dosage: 250 MCG DAILY SUBCUTANEOUSLY FOR 4 DAYS
     Route: 058
     Dates: start: 202002, end: 2020

REACTIONS (1)
  - Premature ovulation [Recovered/Resolved]

NARRATIVE: CASE EVENT DATE: 202002
